FAERS Safety Report 6435717-0 (Version None)
Quarter: 2009Q4

REPORT INFORMATION
  Report Type: 
  Country: None (occurrence: None)
  Receive Date: 20091111
  Receipt Date: 20091006
  Transmission Date: 20100525
  Serious: No
  Sender: FDA-Public Use
  Company Number: US-BAYER-200934168NA

PATIENT
  Age: 27 Year
  Sex: Female
  Weight: 54 kg

DRUGS (1)
  1. OCELLA [Suspect]
     Indication: POLYCYSTIC OVARIES
     Dates: start: 20090501, end: 20090930

REACTIONS (17)
  - ABDOMINAL DISCOMFORT [None]
  - ABDOMINAL DISTENSION [None]
  - BREAST PAIN [None]
  - FLUID RETENTION [None]
  - HEADACHE [None]
  - LIVEDO RETICULARIS [None]
  - MIGRAINE [None]
  - MUSCLE SPASMS [None]
  - PALPITATIONS [None]
  - PARAESTHESIA [None]
  - PYREXIA [None]
  - RASH MACULAR [None]
  - RAYNAUD'S PHENOMENON [None]
  - VAGINAL HAEMORRHAGE [None]
  - VASODILATATION [None]
  - VOMITING [None]
  - WEIGHT FLUCTUATION [None]
